FAERS Safety Report 6122074-2 (Version None)
Quarter: 2009Q1

REPORT INFORMATION
  Report Type: 
  Country: None (occurrence: None)
  Receive Date: 20090316
  Receipt Date: 20090316
  Transmission Date: 20090719
  Serious: Yes (Life-Threatening, Hospitalization)
  Sender: FDA-Public Use
  Company Number: None

PATIENT
  Sex: Male
  Weight: 81.6475 kg

DRUGS (1)
  1. LEVAQUIN IN DEXTROSE 5% [Suspect]
     Indication: PNEUMONIA
     Dosage: 1 INJECTION EVERY 24 HRS IV
     Route: 042
     Dates: start: 20060101, end: 20090313

REACTIONS (1)
  - DRUG INEFFECTIVE [None]
